FAERS Safety Report 5354226-3 (Version None)
Quarter: 2007Q2

REPORT INFORMATION
  Report Type: 
  Country: None (occurrence: None)
  Receive Date: 20070612
  Receipt Date: 20070531
  Transmission Date: 20071010
  Serious: Yes (Hospitalization)
  Sender: FDA-Public Use
  Company Number: US-ELI_LILLY_AND_COMPANY-US200706000508

PATIENT
  Age: 51 Year
  Sex: Female

DRUGS (3)
  1. BYETTA [Suspect]
     Indication: DIABETES MELLITUS NON-INSULIN-DEPENDENT
     Dosage: 10 UG, 2/D
     Route: 058
     Dates: end: 20070101
  2. METOPROLOL 1A FARMA [Concomitant]
     Dosage: 25 MG, 2/D
     Route: 048
     Dates: start: 20070101
  3. TOPROL-XL [Concomitant]
     Dosage: 50 MG, DAILY (1/D)
     Route: 048
     Dates: start: 20050101, end: 20070101

REACTIONS (5)
  - CHOLECYSTECTOMY [None]
  - GASTRIC OPERATION [None]
  - HEPATIC HAEMORRHAGE [None]
  - LIVER DISORDER [None]
  - LIVER OPERATION [None]
